APPROVED DRUG PRODUCT: THIORIDAZINE HYDROCHLORIDE
Active Ingredient: THIORIDAZINE HYDROCHLORIDE
Strength: 100MG
Dosage Form/Route: TABLET;ORAL
Application: A089953 | Product #001
Applicant: SUN PHARMACEUTICAL INDUSTRIES INC
Approved: Oct 7, 1988 | RLD: No | RS: No | Type: DISCN